FAERS Safety Report 7460477-4 (Version None)
Quarter: 2011Q2

REPORT INFORMATION
  Report Type: 
  Country: None (occurrence: None)
  Receive Date: 20110505
  Receipt Date: 20110502
  Transmission Date: 20111010
  Serious: Yes (Life-Threatening, Hospitalization, Other)
  Sender: FDA-Public Use
  Company Number: FR-PFIZER INC-2011093451

PATIENT
  Age: 54 Year
  Sex: Female

DRUGS (9)
  1. XANAX [Suspect]
     Dosage: UNK
     Dates: end: 20110101
  2. ZOLPIDEM [Concomitant]
     Dosage: 1 DF, IN THE EVENING
  3. TOPALGIC [Concomitant]
  4. ACETAMINOPHEN AND TRAMADOL HCL [Suspect]
  5. PROGESTERONE [Concomitant]
     Dosage: 1 DF, IN THE EVENING
  6. ESTREVA [Concomitant]
  7. DIPROSONE [Concomitant]
     Dosage: UNK GTT, UNK
     Route: 003
  8. DIPROSALIC [Concomitant]
  9. LAROXYL [Suspect]
     Indication: TENSION HEADACHE
     Dosage: 15 GTT, 1X/DAY
     Route: 048
     Dates: start: 20110125

REACTIONS (5)
  - INTENTIONAL OVERDOSE [None]
  - ABNORMAL BEHAVIOUR [None]
  - MEMORY IMPAIRMENT [None]
  - DEPRESSED MOOD [None]
  - PNEUMONIA ASPIRATION [None]
